FAERS Safety Report 9511797 (Version 1)
Quarter: 2013Q1

REPORT INFORMATION
  Report Type: Spontaneous
  Country: US (occurrence: None)
  Receive Date: 20130305
  Receipt Date: 20130305
  Transmission Date: 20140127
  Serious: Yes (Other)
  Sender: FDA-Public Use
  Company Number: 163-21880-12051721

PATIENT
  Age: 45 Year
  Sex: Male

DRUGS (2)
  1. REVLIMID [Suspect]
     Indication: PLASMA CELL MYELOMA
     Dosage: 6 IN 7 D
     Route: 048
     Dates: start: 20110519, end: 20120504
  2. ZOLPIDEM (ZOLPIDEM)UNKNOWN [Concomitant]

REACTIONS (3)
  - Neutropenia [None]
  - White blood cell count decreased [None]
  - Staphylococcal infection [None]
